FAERS Safety Report 10394275 (Version 2)
Quarter: 2014Q3

REPORT INFORMATION
  Report Type: Report from Study
  Country: US (occurrence: US)
  Receive Date: 20140819
  Receipt Date: 20140819
  Transmission Date: 20150326
  Serious: Yes (Hospitalization)
  Sender: FDA-Public Use
  Company Number: US-JNJFOC-20140801278

PATIENT
  Age: 80 Year
  Sex: Male
  Weight: 101 kg

DRUGS (12)
  1. METOPROLOL [Concomitant]
     Active Substance: METOPROLOL
     Indication: HEART RATE
     Route: 048
     Dates: start: 20140725
  2. BENZTROPINE MESYLATE. [Concomitant]
     Active Substance: BENZTROPINE MESYLATE
     Route: 048
  3. IBRUTINIB [Suspect]
     Active Substance: IBRUTINIB
     Indication: CHRONIC LYMPHOCYTIC LEUKAEMIA
     Route: 048
     Dates: start: 201404
  4. ALBUTEROL. [Concomitant]
     Active Substance: ALBUTEROL
     Route: 055
  5. ROPINIROLE. [Concomitant]
     Active Substance: ROPINIROLE
     Route: 048
  6. NEXIUM [Concomitant]
     Active Substance: ESOMEPRAZOLE MAGNESIUM
     Route: 048
  7. ZOLOFT [Concomitant]
     Active Substance: SERTRALINE HYDROCHLORIDE
     Route: 048
  8. CARBIDOPA-LEVODOPA [Concomitant]
     Active Substance: CARBIDOPA\LEVODOPA
     Dosage: 25-100 MG TID
     Route: 048
  9. ASPIRIN. [Concomitant]
     Active Substance: ASPIRIN
     Route: 048
  10. METOPROLOL [Concomitant]
     Active Substance: METOPROLOL
     Indication: HEART RATE
     Route: 048
     Dates: end: 20140724
  11. FINASTERIDE. [Concomitant]
     Active Substance: FINASTERIDE
     Route: 048
  12. GAMMA-GLOBULIN [Concomitant]
     Active Substance: IMMUNE GLOBULIN NOS
     Route: 030

REACTIONS (5)
  - Contusion [Not Recovered/Not Resolved]
  - Heart rate decreased [Recovering/Resolving]
  - Swelling [Not Recovered/Not Resolved]
  - Pneumonia [Unknown]
  - Cough [Not Recovered/Not Resolved]

NARRATIVE: CASE EVENT DATE: 2014
